FAERS Safety Report 8402857-6 (Version None)
Quarter: 2012Q2

REPORT INFORMATION
  Report Type: 
  Country: None (occurrence: None)
  Receive Date: 20120601
  Receipt Date: 20120523
  Transmission Date: 20120825
  Serious: Yes (Other)
  Sender: FDA-Public Use
  Company Number: US-VERTEX PHARMACEUTICALS INC.-AE-2012-007689

PATIENT
  Sex: Male

DRUGS (3)
  1. PEG-INTRON [Concomitant]
     Indication: HEPATITIS C
     Dates: start: 20120422
  2. RIBAVIRIN [Concomitant]
     Indication: HEPATITIS C
     Dates: start: 20120422
  3. INCIVEK [Suspect]
     Indication: HEPATITIS C
     Dates: start: 20120422, end: 20120427

REACTIONS (4)
  - PYREXIA [None]
  - DEHYDRATION [None]
  - BEDRIDDEN [None]
  - VOMITING [None]
